FAERS Safety Report 4757643-5 (Version None)
Quarter: 2005Q3

REPORT INFORMATION
  Report Type: 
  Country: None (occurrence: None)
  Receive Date: 20050831
  Receipt Date: 20050630
  Transmission Date: 20060218
  Serious: Yes (Hospitalization, Other)
  Sender: FDA-Public Use
  Company Number: A01200505199

PATIENT
  Age: 80 Year
  Sex: Female
  Weight: 132.7 kg

DRUGS (1)
  1. ARIXTRA [Suspect]
     Indication: DRUG USE FOR UNKNOWN INDICATION
     Dosage: 10MG UNKNOWN
     Route: 058
     Dates: start: 20050428

REACTIONS (1)
  - TRANSIENT ISCHAEMIC ATTACK [None]
